FAERS Safety Report 20109195 (Version 2)
Quarter: 2021Q4

REPORT INFORMATION
  Report Type: Report from Study
  Country: US (occurrence: US)
  Receive Date: 20211124
  Receipt Date: 20211230
  Transmission Date: 20220303
  Serious: No
  Sender: FDA-Public Use
  Company Number: US-ORGANON-O2111USA002288

PATIENT
  Sex: Female
  Weight: 95.254 kg

DRUGS (1)
  1. IMPLANON [Suspect]
     Active Substance: ETONOGESTREL
     Indication: Contraception
     Dosage: 68 MILLIGRAM, 1 ROD IN LEFT ARM
     Route: 059
     Dates: start: 201810

REACTIONS (4)
  - Vaginal haemorrhage [Unknown]
  - Weight increased [Unknown]
  - Complication associated with device [Unknown]
  - Incorrect product administration duration [Unknown]

NARRATIVE: CASE EVENT DATE: 20180101
